FAERS Safety Report 16033889 (Version 1)
Quarter: 2019Q1

REPORT INFORMATION
  Report Type: Spontaneous
  Country: US (occurrence: US)
  Receive Date: 20190206
  Receipt Date: 20190206
  Transmission Date: 20190418
  Serious: Yes (Other)
  Sender: FDA-Public Use
  Company Number: None

PATIENT
  Age: 72 Year
  Sex: Male
  Weight: 92.53 kg

DRUGS (1)
  1. ROSUVASTATIN 5MG [Suspect]
     Active Substance: ROSUVASTATIN
     Indication: HYPERLIPIDAEMIA
     Route: 048
     Dates: start: 20190106, end: 20190110

REACTIONS (4)
  - Nausea [None]
  - Diarrhoea [None]
  - Dysgeusia [None]
  - Faeces soft [None]

NARRATIVE: CASE EVENT DATE: 20190110
